FAERS Safety Report 26028340 (Version 2)
Quarter: 2025Q4

REPORT INFORMATION
  Report Type: Spontaneous
  Country: US (occurrence: US)
  Receive Date: 20251111
  Receipt Date: 20251118
  Transmission Date: 20260118
  Serious: Yes (Other)
  Sender: ELI LILLY AND COMPANY
  Company Number: US-ELI_LILLY_AND_COMPANY-US202511001810

PATIENT
  Age: 77 Year
  Sex: Male

DRUGS (4)
  1. HUMATROPE [Suspect]
     Active Substance: SOMATROPIN
     Indication: Transsphenoidal surgery
     Dosage: UNK UNK, UNKNOWN
     Route: 065
     Dates: start: 2005
  2. HUMATROPE [Suspect]
     Active Substance: SOMATROPIN
     Dosage: UNK UNK, UNKNOWN
     Route: 065
  3. HUMATROPE [Suspect]
     Active Substance: SOMATROPIN
     Dosage: 0.5 MG, DAILY
     Route: 065
  4. INSULIN NOS [Concomitant]
     Active Substance: INSULIN NOS
     Indication: Type 2 diabetes mellitus

REACTIONS (6)
  - Dementia [Unknown]
  - Diabetes mellitus [Unknown]
  - Dysstasia [Unknown]
  - Gait disturbance [Unknown]
  - Illness [Unknown]
  - Product dose omission issue [Unknown]
